FAERS Safety Report 6824484-4 (Version None)
Quarter: 2010Q3

REPORT INFORMATION
  Report Type: 
  Country: None (occurrence: None)
  Receive Date: 20100708
  Receipt Date: 20061025
  Transmission Date: 20110219
  Serious: Yes (Other)
  Sender: FDA-Public Use
  Company Number: US-PFIZER INC-2006130510

PATIENT
  Sex: Male

DRUGS (1)
  1. CHANTIX [Suspect]
     Indication: EX-TOBACCO USER
     Dates: start: 20060808, end: 20060815

REACTIONS (4)
  - CHEST PAIN [None]
  - DYSPHAGIA [None]
  - PARAESTHESIA [None]
  - SENSATION OF FOREIGN BODY [None]
